FAERS Safety Report 18314257 (Version 1)
Quarter: 2020Q3

REPORT INFORMATION
  Report Type: Report from Study
  Country: US (occurrence: US)
  Receive Date: 20200925
  Receipt Date: 20200925
  Transmission Date: 20201103
  Serious: Yes (Hospitalization)
  Sender: FDA-Public Use
  Company Number: US-JNJFOC-A-US2020-202748

PATIENT
  Age: 74 Year
  Sex: Male
  Weight: 105.78 kg

DRUGS (33)
  1. TYLENOL PM [Concomitant]
     Active Substance: ACETAMINOPHEN\DIPHENHYDRAMINE
     Dosage: 325 UNK
     Route: 048
  2. CHOLECALCIFEROL [Concomitant]
     Active Substance: CHOLECALCIFEROL
     Dosage: 1000 USP UNIT, BID
  3. FINASTERIDE. [Concomitant]
     Active Substance: FINASTERIDE
     Dosage: 5 MG, QD
     Dates: start: 20190117
  4. SPIRONOLACTONE. [Concomitant]
     Active Substance: SPIRONOLACTONE
     Dosage: 100 MG
     Dates: start: 20200205
  5. INSULIN GLARGINE [Concomitant]
     Active Substance: INSULIN GLARGINE
     Dosage: 300 U/ML, QD
     Route: 058
  6. TAMSULOSIN [Concomitant]
     Active Substance: TAMSULOSIN
     Dosage: 0.4 MG, QPM
  7. CIPROFLOXACIN. [Concomitant]
     Active Substance: CIPROFLOXACIN
     Dosage: 500 MG, BID
     Route: 048
  8. LIDOCAINE. [Concomitant]
     Active Substance: LIDOCAINE
  9. TRAMADOL. [Concomitant]
     Active Substance: TRAMADOL
     Dosage: 50 MG, TID
  10. TYLENOL PM [Concomitant]
     Active Substance: ACETAMINOPHEN\DIPHENHYDRAMINE
     Indication: PAIN
     Dosage: 500 MG, BID
  11. AMIODARONE [Concomitant]
     Active Substance: AMIODARONE
     Dosage: 400 MG, QD
     Dates: start: 201902
  12. MEMANTINE. [Concomitant]
     Active Substance: MEMANTINE
     Dosage: 10 MG, QD
     Route: 048
     Dates: start: 20190107
  13. POTASSIUM [Concomitant]
     Active Substance: POTASSIUM
     Dosage: 10 MEQ, 4 TABLETS BID
     Dates: start: 2013
  14. TORSEMIDE. [Concomitant]
     Active Substance: TORSEMIDE
     Dosage: B
     Dates: start: 2016
  15. INSULIN LISPRO [Concomitant]
     Active Substance: INSULIN LISPRO
     Dosage: 200 U/ML, TID
     Route: 058
  16. WARFARIN [Concomitant]
     Active Substance: WARFARIN
     Dosage: 1 MG, QD
     Dates: start: 2013
  17. OPSUMIT [Suspect]
     Active Substance: MACITENTAN
     Indication: PULMONARY ARTERIAL HYPERTENSION
     Route: 048
     Dates: start: 20200206
  18. LYRICA [Concomitant]
     Active Substance: PREGABALIN
     Dosage: 100 MG, TID
     Dates: start: 2018
  19. ALBUTEROL. [Concomitant]
     Active Substance: ALBUTEROL
     Dosage: 1 PUFF, QID
     Dates: start: 201704
  20. NOVOLOG [Concomitant]
     Active Substance: INSULIN ASPART
     Dosage: 40 ML, TID
     Dates: start: 20200204
  21. KEFLEX [Concomitant]
     Active Substance: CEPHALEXIN
     Dosage: 500 MG, 1 AM, 1 PM
     Dates: start: 20200227
  22. METOLAZONE. [Concomitant]
     Active Substance: METOLAZONE
     Dosage: UNK
     Dates: start: 2016
  23. POTASSIUM CHLORIDE. [Concomitant]
     Active Substance: POTASSIUM CHLORIDE
     Dosage: 20 MEQ
  24. SENNA ALATA [Concomitant]
     Dosage: 17.2 MG, QPM
  25. TOUJEO [Concomitant]
     Active Substance: INSULIN GLARGINE
     Dosage: 50 ML, QD
  26. MULTIVITAMIN AND MINERAL [Concomitant]
     Active Substance: MINERALS\VITAMINS
     Dosage: UNK, QD
  27. FISH OIL [Concomitant]
     Active Substance: FISH OIL
     Dosage: 1000 MG, QD
     Dates: start: 20191112
  28. PANTOPRAZOLE [Concomitant]
     Active Substance: PANTOPRAZOLE
     Dosage: 40 MG, QAM
  29. ATORVASTATIN [Concomitant]
     Active Substance: ATORVASTATIN
     Dosage: 20 MG, BID
  30. CETIRIZINE [Concomitant]
     Active Substance: CETIRIZINE HYDROCHLORIDE
     Dosage: 10 MG, QD
     Dates: start: 201906
  31. CYANOCOBALAMIN. [Concomitant]
     Active Substance: CYANOCOBALAMIN
     Dosage: 500 MEQ, BID
     Dates: start: 20130307
  32. CEFTRIAXONE. [Concomitant]
     Active Substance: CEFTRIAXONE
     Dosage: 2 G, QD
     Route: 042
     Dates: start: 20200115, end: 20200226
  33. OMEPRAZOLE. [Concomitant]
     Active Substance: OMEPRAZOLE
     Dosage: 20 MG, QD

REACTIONS (29)
  - Aspartate aminotransferase increased [Unknown]
  - Therapy non-responder [Not Recovered/Not Resolved]
  - Femur fracture [Unknown]
  - Asthenia [Unknown]
  - Decreased appetite [Unknown]
  - White blood cell count increased [Unknown]
  - Alanine aminotransferase increased [Unknown]
  - Haemoglobin decreased [Unknown]
  - Muscle strain [Unknown]
  - Hypotension [Unknown]
  - Peripheral swelling [Unknown]
  - Hypersomnia [Unknown]
  - Weight decreased [Unknown]
  - Dysarthria [Unknown]
  - Haematoma [Unknown]
  - Renal disorder [Not Recovered/Not Resolved]
  - Urinary tract infection [Not Recovered/Not Resolved]
  - Retroperitoneal haemorrhage [Unknown]
  - Cardiac index decreased [Unknown]
  - Urinary retention [Unknown]
  - Urosepsis [Unknown]
  - Lethargy [Unknown]
  - Aortic valve incompetence [Unknown]
  - Fall [Recovered/Resolved]
  - Klebsiella test positive [Unknown]
  - Pain in extremity [Unknown]
  - Skin laceration [Unknown]
  - Liver function test abnormal [Unknown]
  - Liver function test increased [Unknown]

NARRATIVE: CASE EVENT DATE: 2020
